FAERS Safety Report 9888558 (Version 1)
Quarter: 2014Q1

REPORT INFORMATION
  Report Type: Spontaneous
  Country: US (occurrence: US)
  Receive Date: 20140211
  Receipt Date: 20140211
  Transmission Date: 20141002
  Serious: Yes (Death)
  Sender: FDA-Public Use
  Company Number: US-WATSON-2014-02324

PATIENT
  Age: 53 Year
  Sex: Female

DRUGS (2)
  1. NORCO (UNKNOWN) (WATSON LABORATORIES) [Suspect]
     Indication: PAIN
     Dosage: UNK, UNKNOWN
     Route: 065
  2. MS CONTIN [Concomitant]
     Indication: PRODUCT USED FOR UNKNOWN INDICATION
     Dosage: UNK

REACTIONS (3)
  - Death [Fatal]
  - Vomiting [Fatal]
  - Aspiration [Fatal]
